FAERS Safety Report 13195157 (Version 1)
Quarter: 2017Q1

REPORT INFORMATION
  Report Type: Spontaneous
  Country: US (occurrence: US)
  Receive Date: 20170207
  Receipt Date: 20170207
  Transmission Date: 20170428
  Serious: No
  Sender: FDA-Public Use
  Company Number: US-BAUSCH-BL-2016-015943

PATIENT
  Sex: Female

DRUGS (2)
  1. LOTEMAX [Suspect]
     Active Substance: LOTEPREDNOL ETABONATE
     Indication: PREOPERATIVE CARE
     Route: 047
     Dates: start: 2016
  2. ZYLET [Suspect]
     Active Substance: LOTEPREDNOL ETABONATE\TOBRAMYCIN
     Indication: PREOPERATIVE CARE
     Route: 047
     Dates: start: 201606, end: 201606

REACTIONS (5)
  - Chest discomfort [Not Recovered/Not Resolved]
  - Erythema [Recovering/Resolving]
  - Swelling face [Recovering/Resolving]
  - Malaise [Recovering/Resolving]
  - Feeling hot [Recovering/Resolving]

NARRATIVE: CASE EVENT DATE: 2016
